FAERS Safety Report 5315153-0 (Version None)
Quarter: 2007Q2

REPORT INFORMATION
  Report Type: 
  Country: None (occurrence: None)
  Receive Date: 20070502
  Receipt Date: 20070420
  Transmission Date: 20071010
  Serious: Yes (Hospitalization)
  Sender: FDA-Public Use
  Company Number: CL-PFIZER INC-2007019025

PATIENT
  Sex: Female
  Weight: 48 kg

DRUGS (1)
  1. SU-011,248 [Suspect]
     Indication: GASTROINTESTINAL STROMAL TUMOUR
     Route: 048

REACTIONS (1)
  - MALNUTRITION [None]
